FAERS Safety Report 8964054 (Version 2)
Quarter: 2013Q1

REPORT INFORMATION
  Report Type: Spontaneous
  Country: JP (occurrence: JP)
  Receive Date: 20121214
  Receipt Date: 20130118
  Transmission Date: 20140127
  Serious: Yes (Hospitalization)
  Sender: FDA-Public Use
  Company Number: JP-SANOFI-AVENTIS-2012SA090359

PATIENT
  Age: 73 Year
  Sex: Male
  Weight: 54 kg

DRUGS (16)
  1. ELPLAT [Suspect]
     Indication: COLON CANCER
     Dosage: INJECTION?71.2 MG/M2
     Route: 041
     Dates: start: 20121107, end: 20121107
  2. LOXONIN [Suspect]
     Indication: ABDOMINAL PAIN
     Route: 048
     Dates: start: 20121105, end: 20121106
  3. LOXONIN [Suspect]
     Indication: ABDOMINAL PAIN
     Route: 048
     Dates: start: 20121108, end: 20121110
  4. LOXONIN [Suspect]
     Indication: ABDOMINAL PAIN
     Route: 048
     Dates: start: 20121111, end: 20121113
  5. LOXONIN [Suspect]
     Indication: ABDOMINAL PAIN
     Route: 048
     Dates: start: 20121114, end: 20121114
  6. LOXONIN [Suspect]
     Indication: ABDOMINAL PAIN
     Route: 048
     Dates: start: 20121115, end: 20121118
  7. LOXONIN [Suspect]
     Indication: ABDOMINAL PAIN
     Route: 048
     Dates: start: 20121119, end: 20121119
  8. LOXONIN [Suspect]
     Indication: ABDOMINAL PAIN
     Route: 048
     Dates: start: 20121121, end: 20121121
  9. LOXONIN [Suspect]
     Indication: ABDOMINAL PAIN
     Route: 048
     Dates: start: 20121122, end: 20121122
  10. LOXONIN [Suspect]
     Indication: ABDOMINAL PAIN
     Route: 048
     Dates: start: 20121123, end: 20121125
  11. CALCIUM LEVOFOLINATE [Concomitant]
     Dates: start: 20121107, end: 20121107
  12. 5-FU [Concomitant]
     Dates: start: 20121107, end: 20121107
  13. ALOXI [Concomitant]
     Dates: start: 20121107, end: 20121107
  14. DEXAMETHASONE SODIUM PHOSPHATE [Concomitant]
     Dates: start: 20121107, end: 20121107
  15. SOLULACT [Concomitant]
     Dates: start: 20121119, end: 20121122
  16. SOLDEM 3A [Concomitant]
     Dates: start: 20121119, end: 20121122

REACTIONS (2)
  - Hyperkalaemia [Recovered/Resolved]
  - Renal failure acute [Recovered/Resolved]
